FAERS Safety Report 6928390-6 (Version None)
Quarter: 2010Q3

REPORT INFORMATION
  Report Type: 
  Country: None (occurrence: None)
  Receive Date: 20100810
  Receipt Date: 20100727
  Transmission Date: 20110219
  Serious: Yes (Hospitalization)
  Sender: FDA-Public Use
  Company Number: 2009AC000211

PATIENT
  Age: 51 Year
  Sex: Male

DRUGS (47)
  1. DIGOXIN [Suspect]
     Dosage: 0.125 MG;QD;PO
     Route: 048
     Dates: start: 20080501
  2. DIGOXIN [Suspect]
     Dosage: 0.25 MG;PO
     Route: 048
  3. DIGOXIN [Suspect]
     Dosage: .125 MG;QD
     Dates: start: 20050401
  4. DIGOXIN [Suspect]
     Indication: CARDIAC FAILURE CONGESTIVE
     Dosage: 0.25 MG;Q4H;IV
     Route: 042
     Dates: start: 20050331, end: 20050331
  5. LASIX [Concomitant]
  6. ASPIRIN [Concomitant]
  7. LORATADINE [Concomitant]
  8. MINOCIN [Concomitant]
  9. COREG [Concomitant]
  10. VITAMIN D [Concomitant]
  11. TRICOR [Concomitant]
  12. EPLERENONE [Concomitant]
  13. LYRICA [Concomitant]
  14. DIOVAN [Concomitant]
  15. PLAVIX [Concomitant]
  16. PRAVASTATIN [Concomitant]
  17. HYDROXYZINE [Concomitant]
  18. CALCIUM [Concomitant]
  19. ZELNORM [Concomitant]
  20. PREVACID [Concomitant]
  21. INSPRA [Concomitant]
  22. LIPITOR [Concomitant]
  23. CLOTRIMAZOLEBETHAMETH CREAM [Concomitant]
  24. MINOCYCLINE HCL [Concomitant]
  25. LEVAQUIN [Concomitant]
  26. CLARITHROMYCIN [Concomitant]
  27. NITROGLYCERIN [Concomitant]
  28. KETOROLAC [Concomitant]
  29. ACARBOSE [Concomitant]
  30. CIPRO [Concomitant]
  31. CYCLOBENZAPRINE [Concomitant]
  32. TAMIFLU [Concomitant]
  33. LASIX [Concomitant]
  34. CLOTRIMAZOLE [Concomitant]
  35. HYDRALAZINE [Concomitant]
  36. LORATADINE [Concomitant]
  37. PREVACID [Concomitant]
  38. SINGULAIR [Concomitant]
  39. TOPROL-XL [Concomitant]
  40. VISTARIL [Concomitant]
  41. VITAMIN B COMPLEX CAP [Concomitant]
  42. POTASSIUM [Concomitant]
  43. METFORMIN [Concomitant]
  44. GLUCOTROL XL [Concomitant]
  45. JANUVIA [Concomitant]
  46. PRECOSE [Concomitant]
  47. PROTONIX [Concomitant]

REACTIONS (53)
  - ACUTE RESPIRATORY DISTRESS SYNDROME [None]
  - ANAL FISTULA [None]
  - ANGINA PECTORIS [None]
  - ANHEDONIA [None]
  - ANXIETY [None]
  - ASTHENIA [None]
  - AUTONOMIC NEUROPATHY [None]
  - BASAL CELL CARCINOMA [None]
  - BLOOD CHOLESTEROL INCREASED [None]
  - BLOOD UREA INCREASED [None]
  - BUNDLE BRANCH BLOCK LEFT [None]
  - CARDIAC ANEURYSM [None]
  - CARDIAC DISORDER [None]
  - CARDIAC FAILURE CONGESTIVE [None]
  - CARDIOACTIVE DRUG LEVEL INCREASED [None]
  - CARDIOMEGALY [None]
  - CARDIOMYOPATHY [None]
  - CAROTIDYNIA [None]
  - CATHETERISATION CARDIAC ABNORMAL [None]
  - CHEST DISCOMFORT [None]
  - CONDITION AGGRAVATED [None]
  - CORONARY ARTERY DISEASE [None]
  - DERMATITIS [None]
  - DIABETIC NEUROPATHY [None]
  - DIASTOLIC DYSFUNCTION [None]
  - DIZZINESS [None]
  - DYSPHAGIA [None]
  - DYSPNOEA [None]
  - DYSPNOEA EXERTIONAL [None]
  - ECONOMIC PROBLEM [None]
  - ELECTROENCEPHALOGRAM ABNORMAL [None]
  - FATIGUE [None]
  - FLUID OVERLOAD [None]
  - GASTROOESOPHAGEAL REFLUX DISEASE [None]
  - GLUCOSE TOLERANCE IMPAIRED [None]
  - HYPERHIDROSIS [None]
  - HYPERKINESIA [None]
  - HYPERLIPIDAEMIA [None]
  - HYPERTENSION [None]
  - HYPOTENSION [None]
  - IMPAIRED FASTING GLUCOSE [None]
  - MULTIPLE INJURIES [None]
  - PAIN [None]
  - PALPITATIONS [None]
  - RASH MACULAR [None]
  - RECTAL LESION [None]
  - RESPIRATORY FAILURE [None]
  - RESTLESS LEGS SYNDROME [None]
  - SLEEP APNOEA SYNDROME [None]
  - SLEEP DISORDER [None]
  - TYPE 2 DIABETES MELLITUS [None]
  - UNEVALUABLE EVENT [None]
  - WEIGHT INCREASED [None]
